FAERS Safety Report 6905143-6 (Version None)
Quarter: 2010Q3

REPORT INFORMATION
  Report Type: 
  Country: None (occurrence: None)
  Receive Date: 20100804
  Receipt Date: 20091016
  Transmission Date: 20110219
  Serious: No
  Sender: FDA-Public Use
  Company Number: US-PFIZER INC-2009246839

PATIENT
  Sex: Male
  Weight: 136.05 kg

DRUGS (18)
  1. LYRICA [Suspect]
     Indication: PAIN
     Dosage: 75 MG, 2X/DAY
     Dates: start: 20090318, end: 20090101
  2. LYRICA [Suspect]
     Indication: FIBROMYALGIA
     Dosage: 150 MG, 2X/DAY
     Dates: start: 20090413, end: 20090101
  3. GABAPENTIN [Suspect]
     Indication: PAIN
     Dosage: 300 MG, 2X/DAY
     Dates: start: 20090513, end: 20090721
  4. METFORMIN [Concomitant]
     Indication: DIABETES MELLITUS
     Dosage: 500 MG, 2X/DAY
  5. HYDROCODONE BITARTRATE [Concomitant]
     Dosage: UNK
  6. OXYCODONE [Concomitant]
     Dosage: 7.5 MG, UNK
  7. OXYCODONE [Concomitant]
  8. CELEBREX [Concomitant]
     Dosage: 200 MG, UNK
  9. DIAZEPAM [Concomitant]
     Dosage: 10 MG, UNK
  10. ZOCOR [Concomitant]
     Dosage: 20 MG, UNK
  11. LISINOPRIL AND HYDROCHLOROTHIAZIDE [Concomitant]
     Dosage: UNK
  12. EFFEXOR XR [Concomitant]
     Dosage: 150 MG, UNK
  13. TAMSULOSIN [Concomitant]
     Dosage: 0.1 MG, UNK
  14. ACETYLSALICYLIC ACID [Concomitant]
     Dosage: 81 MG, UNK
  15. DOXEPIN [Concomitant]
     Dosage: 25 MG, UNK
  16. PRILOSEC [Concomitant]
     Dosage: UNK
  17. CIALIS [Concomitant]
     Dosage: UNK
  18. BYETTA [Concomitant]
     Dosage: UNK

REACTIONS (5)
  - ABNORMAL DREAMS [None]
  - DIZZINESS [None]
  - NAUSEA [None]
  - SOMNOLENCE [None]
  - VISION BLURRED [None]
